FAERS Safety Report 16427644 (Version 2)
Quarter: 2019Q2

REPORT INFORMATION
  Report Type: Report from Study
  Country: CA (occurrence: CA)
  Receive Date: 20190613
  Receipt Date: 20190618
  Transmission Date: 20190711
  Serious: Yes (Other)
  Sender: FDA-Public Use
  Company Number: CA-BAUSCH-BL-2019-016587

PATIENT
  Age: 61 Year
  Sex: Male

DRUGS (6)
  1. OXALIPLATIN. [Suspect]
     Active Substance: OXALIPLATIN
     Indication: RETINOPATHY
     Route: 065
  2. AVASTIN [Suspect]
     Active Substance: BEVACIZUMAB
     Indication: RETINOPATHY
     Route: 042
  3. FLUOROURACIL. [Suspect]
     Active Substance: FLUOROURACIL
     Indication: RETINOPATHY
     Route: 065
  4. FOLINIC ACID [Suspect]
     Active Substance: LEUCOVORIN
     Indication: RETINOPATHY
     Route: 065
  5. IRINOTECAN [Suspect]
     Active Substance: IRINOTECAN
     Indication: RETINOPATHY
     Dosage: SOLUTION INTRAVENOUS
     Route: 065
  6. XELODA [Suspect]
     Active Substance: CAPECITABINE
     Indication: RETINOPATHY
     Route: 048

REACTIONS (2)
  - Therapeutic response decreased [Not Recovered/Not Resolved]
  - Colorectal cancer [Not Recovered/Not Resolved]
